FAERS Safety Report 25932290 (Version 1)
Quarter: 2025Q4

REPORT INFORMATION
  Report Type: Spontaneous
  Country: US (occurrence: US)
  Receive Date: 20251016
  Receipt Date: 20251016
  Transmission Date: 20260118
  Serious: No
  Sender: ABBVIE
  Company Number: US-ABBVIE-6504654

PATIENT
  Sex: Male

DRUGS (1)
  1. RISANKIZUMAB [Suspect]
     Active Substance: RISANKIZUMAB
     Indication: Colitis ulcerative
     Dosage: 4TH ON BODY INJECTION.
     Route: 058
     Dates: start: 20251009

REACTIONS (4)
  - Nausea [Unknown]
  - Injection site pain [Not Recovered/Not Resolved]
  - Vomiting [Unknown]
  - Back pain [Unknown]

NARRATIVE: CASE EVENT DATE: 20251009
